FAERS Safety Report 6235744-2 (Version None)
Quarter: 2009Q2

REPORT INFORMATION
  Report Type: 
  Country: None (occurrence: None)
  Receive Date: 20090619
  Receipt Date: 20090615
  Transmission Date: 20091009
  Serious: Yes (Other)
  Sender: FDA-Public Use
  Company Number: US-RANBAXY-2009US-24837

PATIENT

DRUGS (2)
  1. ISOTRETINOIN [Suspect]
     Indication: SQUAMOUS CELL CARCINOMA
     Dosage: 20 MG, UNK
     Route: 048
  2. AMNESTEEM [Suspect]
     Indication: DRUG USE FOR UNKNOWN INDICATION
     Dosage: 20 MG, UNK
     Route: 048

REACTIONS (2)
  - OFF LABEL USE [None]
  - PULMONARY MASS [None]
